FAERS Safety Report 6265003-3 (Version None)
Quarter: 2009Q3

REPORT INFORMATION
  Report Type: 
  Country: None (occurrence: None)
  Receive Date: 20090713
  Receipt Date: 20090701
  Transmission Date: 20100115
  Serious: Yes (Hospitalization, Other)
  Sender: FDA-Public Use
  Company Number: US-BAYER-200923686NA

PATIENT
  Age: 46 Year
  Sex: Female

DRUGS (9)
  1. BETASERON [Suspect]
     Indication: MULTIPLE SCLEROSIS
     Route: 058
     Dates: start: 20060101, end: 20090501
  2. REBIF [Concomitant]
  3. REBIF [Concomitant]
     Dosage: PRE-BETASERON
  4. CYMBALTA [Concomitant]
  5. LYRICA [Concomitant]
  6. POTASSIUM SUPPLEMENT [Concomitant]
  7. OXYCONTIN [Concomitant]
  8. HYDROCODONE BITARTRATE [Concomitant]
  9. SOMA [Concomitant]

REACTIONS (7)
  - COGNITIVE DISORDER [None]
  - CONFUSIONAL STATE [None]
  - FALL [None]
  - INJECTION SITE REACTION [None]
  - LOSS OF CONSCIOUSNESS [None]
  - MULTIPLE SCLEROSIS [None]
  - ROAD TRAFFIC ACCIDENT [None]
